FAERS Safety Report 18462201 (Version 1)
Quarter: 2020Q4

REPORT INFORMATION
  Report Type: Spontaneous
  Country: CH (occurrence: CH)
  Receive Date: 20201104
  Receipt Date: 20201104
  Transmission Date: 20210114
  Serious: Yes (Other)
  Sender: FDA-Public Use
  Company Number: CH-009507513-2010CHE011580

PATIENT
  Age: 58 Year
  Sex: Male

DRUGS (14)
  1. PANTOZOL [Concomitant]
     Active Substance: PANTOPRAZOLE SODIUM
  2. ISCADOR [Concomitant]
     Active Substance: VISCUM ALBUM FRUITING TOP
  3. POTASSIUM CHLORIDE. [Concomitant]
     Active Substance: POTASSIUM CHLORIDE
  4. TOREM [Concomitant]
     Active Substance: TORSEMIDE
  5. PEMBROLIZUMAB. [Suspect]
     Active Substance: PEMBROLIZUMAB
     Indication: METASTATIC BRONCHIAL CARCINOMA
     Dosage: 200 MILLIGRAM
     Route: 041
     Dates: start: 20200812
  6. ZYLORIC [Concomitant]
     Active Substance: ALLOPURINOL
  7. HEPATODORON [Concomitant]
  8. BORAGE [Concomitant]
  9. HYDROCORTISONE. [Concomitant]
     Active Substance: HYDROCORTISONE
  10. ATORVASTATIN [Concomitant]
     Active Substance: ATORVASTATIN
  11. ALDACTONE [Concomitant]
     Active Substance: SPIRONOLACTONE
  12. CHOLECALCIFEROL [Concomitant]
     Active Substance: CHOLECALCIFEROL
  13. METARAMINOL BITARTRATE [Concomitant]
     Active Substance: METARAMINOL BITARTRATE
  14. KETOCONAZOLE. [Suspect]
     Active Substance: KETOCONAZOLE
     Indication: CUSHING^S SYNDROME
     Route: 048
     Dates: start: 20191119

REACTIONS (2)
  - Thrombocytopenia [Not Recovered/Not Resolved]
  - Hypophysitis [Unknown]

NARRATIVE: CASE EVENT DATE: 20200109
